FAERS Safety Report 8045706 (Version 3)
Quarter: 2013Q3

REPORT INFORMATION
  Report Type: Spontaneous
  Country: US (occurrence: US)
  Receive Date: 20110720
  Receipt Date: 20130719
  Transmission Date: 20140515
  Serious: No
  Sender: FDA-Public Use
  Company Number: US-B.I. PHARMACEUTICALS,INC./RIDGEFIELD-2011-BP-16376BP

PATIENT
  Age: 83 Year
  Sex: Female

DRUGS (14)
  1. ZANTAC 150 (RANITIDINE HYDROCHLORIDE) [Suspect]
     Indication: DYSPEPSIA
     Dosage: 300 MG
     Route: 048
     Dates: start: 2011
  2. ZANTAC 150 (RANITIDINE HYDROCHLORIDE) [Suspect]
     Indication: GASTRIC ULCER
     Dosage: 300 MG
     Route: 048
  3. ZANTAC 150 (RANITIDINE HYDROCHLORIDE) [Suspect]
     Indication: DYSPEPSIA
  4. CARVEDILOL [Suspect]
     Indication: CARDIAC DISORDER
     Route: 048
     Dates: start: 201110, end: 20120827
  5. CARVEDILOL [Suspect]
     Indication: HEART RATE DECREASED
  6. METOPROLOL [Concomitant]
     Indication: CARDIAC DISORDER
     Route: 048
     Dates: start: 201106
  7. METOPROLOL [Concomitant]
     Indication: BLOOD PRESSURE
  8. PEPTO BISMOL [Concomitant]
     Indication: DYSPEPSIA
     Route: 048
     Dates: start: 2012
  9. PEPTO BISMOL [Concomitant]
     Indication: GASTRIC ULCER
  10. GAS X [Concomitant]
     Indication: DYSPEPSIA
     Dosage: FORMULATION: LIQUID
     Route: 048
  11. GAS X [Concomitant]
     Indication: GASTRIC ULCER
  12. LISINOPRIL [Concomitant]
     Dosage: 7.5 MG
     Route: 048
  13. TYLENOL [Concomitant]
     Indication: ARTHRITIS
     Route: 048
  14. ALUMINUM HYDROXIDE 500 MG / MAGNESIUM HYDROXIDE 500 MG [Concomitant]
     Indication: DYSPEPSIA
     Route: 048

REACTIONS (9)
  - Dyspepsia [Not Recovered/Not Resolved]
  - Asthenia [Not Recovered/Not Resolved]
  - Dyspnoea exertional [Not Recovered/Not Resolved]
  - Abdominal distension [Not Recovered/Not Resolved]
  - Eructation [Not Recovered/Not Resolved]
  - Viral infection [Unknown]
  - Insomnia [Not Recovered/Not Resolved]
  - Dyspnoea [Not Recovered/Not Resolved]
  - Abdominal distension [Not Recovered/Not Resolved]
